FAERS Safety Report 21571837 (Version 2)
Quarter: 2022Q4

REPORT INFORMATION
  Report Type: Report from Study
  Country: US (occurrence: US)
  Receive Date: 20221109
  Receipt Date: 20221227
  Transmission Date: 20230112
  Serious: Yes (Other)
  Sender: FDA-Public Use
  Company Number: US-BAYER-2022A152722

PATIENT
  Age: 70 Year
  Sex: Male

DRUGS (6)
  1. STIVARGA [Suspect]
     Active Substance: REGORAFENIB
     Indication: Colorectal cancer metastatic
     Dosage: 160 MG, QD, 21 DAYS OF 28 CYCLE
     Route: 048
  2. ACTIRON CF [Concomitant]
     Dosage: 165-2MG
  3. AMLODIPINE BESYLATE [Concomitant]
     Active Substance: AMLODIPINE BESYLATE
     Dosage: 10MG
  4. CALCIUM\VITAMIN D [Concomitant]
     Active Substance: CALCIUM\VITAMIN D
     Dosage: 600-20MG-MCG
  5. LISINOPRIL [Concomitant]
     Active Substance: LISINOPRIL
     Dosage: 10MG
  6. VITAMINS NOS [Concomitant]
     Active Substance: VITAMINS
     Dosage: UNK

REACTIONS (3)
  - Neuropathy peripheral [Recovering/Resolving]
  - Palmar-plantar erythrodysaesthesia syndrome [Recovering/Resolving]
  - Drug ineffective [Unknown]
